FAERS Safety Report 15643243 (Version 4)
Quarter: 2020Q3

REPORT INFORMATION
  Report Type: Spontaneous
  Country: US (occurrence: US)
  Receive Date: 20181121
  Receipt Date: 20200703
  Transmission Date: 20201102
  Serious: Yes (Hospitalization, Other)
  Sender: FDA-Public Use
  Company Number: US-SA-2018SA317580

PATIENT

DRUGS (21)
  1. PROPRANOLOL HCL [Concomitant]
     Active Substance: PROPRANOLOL HYDROCHLORIDE
  2. DICYCLOMINE [Concomitant]
     Active Substance: DICYCLOMINE HYDROCHLORIDE
  3. OXYCODONE AND ACETAMINOPHEN [Concomitant]
     Active Substance: ACETAMINOPHEN\OXYCODONE HYDROCHLORIDE
  4. ESCITALOPRAM [Concomitant]
     Active Substance: ESCITALOPRAM OXALATE
  5. DUPIXENT [Suspect]
     Active Substance: DUPILUMAB
     Dosage: 300 MG, QOW
     Route: 058
     Dates: start: 20180430
  6. ELIQUIS [Concomitant]
     Active Substance: APIXABAN
  7. LAMOTRIGINE. [Concomitant]
     Active Substance: LAMOTRIGINE
  8. PAROXETINE. [Concomitant]
     Active Substance: PAROXETINE
  9. VITAMINS NOS [Concomitant]
     Active Substance: VITAMINS
  10. KETOCONAZOLE. [Concomitant]
     Active Substance: KETOCONAZOLE
  11. VIIBRYD [Concomitant]
     Active Substance: VILAZODONE HYDROCHLORIDE
  12. PROMETHAZINE ? CODEINE [CODEINE PHOSPHATE;PROMETHAZINE HYDROCHLORIDE] [Concomitant]
  13. DOXYCYCLINE HYCLATE. [Concomitant]
     Active Substance: DOXYCYCLINE HYCLATE
  14. FLUOXETINE [Concomitant]
     Active Substance: FLUOXETINE HYDROCHLORIDE
  15. DUPIXENT [Suspect]
     Active Substance: DUPILUMAB
     Indication: DERMATITIS ATOPIC
     Dosage: 300 MG, QOW
     Route: 058
     Dates: start: 20180401
  16. CARAFATE [Concomitant]
     Active Substance: SUCRALFATE
  17. TRIAMCINOLONE ACETONIDE. [Concomitant]
     Active Substance: TRIAMCINOLONE ACETONIDE
  18. PANTOPRAZOLE [Concomitant]
     Active Substance: PANTOPRAZOLE
  19. PROCHLORPERAZINE MALEATE. [Concomitant]
     Active Substance: PROCHLORPERAZINE MALEATE
  20. TRAMADOL HCL [Concomitant]
     Active Substance: TRAMADOL HYDROCHLORIDE
  21. AZITHROMYCINE [Concomitant]
     Active Substance: AZITHROMYCIN

REACTIONS (8)
  - Injection site bruising [Unknown]
  - Seizure [Unknown]
  - Benign neoplasm of spinal cord [Unknown]
  - Back pain [Unknown]
  - Thrombosis [Unknown]
  - Unevaluable event [Unknown]
  - Pulmonary embolism [Unknown]
  - Pruritus [Unknown]

NARRATIVE: CASE EVENT DATE: 202006
